FAERS Safety Report 24907916 (Version 1)
Quarter: 2025Q1

REPORT INFORMATION
  Report Type: Spontaneous
  Country: US (occurrence: US)
  Receive Date: 20250131
  Receipt Date: 20250131
  Transmission Date: 20250408
  Serious: No
  Sender: SANOFI AVENTIS
  Company Number: US-SA-2025SA030140

PATIENT
  Age: 7 Year
  Sex: Male

DRUGS (1)
  1. DUPIXENT [Suspect]
     Active Substance: DUPILUMAB
     Indication: Dermatitis atopic
     Dosage: 300MG, EVERY 14 DAYS
     Route: 058

REACTIONS (6)
  - Blister [Unknown]
  - Skin papilloma [Unknown]
  - Condition aggravated [Unknown]
  - Pain [Unknown]
  - Pyrexia [Unknown]
  - Injection site pain [Not Recovered/Not Resolved]
